FAERS Safety Report 9102848 (Version 2)
Quarter: 2013Q1

REPORT INFORMATION
  Report Type: Spontaneous
  Country: JP (occurrence: JP)
  Receive Date: 20130218
  Receipt Date: 20130318
  Transmission Date: 20140127
  Serious: Yes (Disabling, Other)
  Sender: FDA-Public Use
  Company Number: JP-ROCHE-1189255

PATIENT
  Age: 51 Year
  Sex: Female

DRUGS (3)
  1. VESANOID [Suspect]
     Indication: ACUTE PROMYELOCYTIC LEUKAEMIA
     Dosage: DAY1
     Route: 048
  2. IDARUBICIN HYDROCHLORIDE [Concomitant]
     Indication: ACUTE PROMYELOCYTIC LEUKAEMIA
     Dosage: DAY2,4,6,8
     Route: 041
  3. ANTICOAGULANTS [Concomitant]
     Dosage: DOSAGE IS UNCERTAIN.
     Route: 065
     Dates: start: 20120603

REACTIONS (4)
  - Renal failure acute [Recovered/Resolved with Sequelae]
  - Renal tubular necrosis [Unknown]
  - Retinoic acid syndrome [Unknown]
  - Rash [Unknown]
